FAERS Safety Report 7759503-4 (Version None)
Quarter: 2011Q3

REPORT INFORMATION
  Report Type: 
  Country: None (occurrence: None)
  Receive Date: 20110919
  Receipt Date: 20110919
  Transmission Date: 20111222
  Serious: Yes (Other)
  Sender: FDA-Public Use
  Company Number: None

PATIENT
  Age: 59 Year
  Sex: Female
  Weight: 61.234 kg

DRUGS (2)
  1. ARTICAINE [Concomitant]
  2. SEPTOCAINE [Suspect]

REACTIONS (2)
  - GLOSSODYNIA [None]
  - HYPOAESTHESIA ORAL [None]
